FAERS Safety Report 7789376-5 (Version None)
Quarter: 2011Q3

REPORT INFORMATION
  Report Type: 
  Country: None (occurrence: None)
  Receive Date: 20110930
  Receipt Date: 20110926
  Transmission Date: 20111222
  Serious: Yes (Life-Threatening)
  Sender: FDA-Public Use
  Company Number: IT-GLAXOSMITHKLINE-B0751905A

PATIENT
  Sex: Female

DRUGS (1)
  1. ZANTAC [Suspect]
     Indication: PROPHYLAXIS OF NAUSEA AND VOMITING
     Dosage: 100MG PER DAY
     Dates: start: 20110713, end: 20110923

REACTIONS (4)
  - DEPRESSED LEVEL OF CONSCIOUSNESS [None]
  - CYANOSIS [None]
  - HYPOTENSION [None]
  - VOMITING [None]
